FAERS Safety Report 20861117 (Version 1)
Quarter: 2022Q2

REPORT INFORMATION
  Report Type: Spontaneous
  Country: US (occurrence: None)
  Receive Date: 20220520
  Receipt Date: 20220520
  Transmission Date: 20220720
  Serious: Yes (Life-Threatening, Hospitalization)
  Sender: FDA-Public Use
  Company Number: None

PATIENT
  Age: 26 Year
  Sex: Female

DRUGS (1)
  1. ROBAXIN [Suspect]
     Active Substance: METHOCARBAMOL
     Indication: Anaphylactic reaction
     Dosage: FREQUENCY : AS NEEDED;?
     Route: 042
     Dates: start: 20211013, end: 20211017

REACTIONS (5)
  - Cough [None]
  - Dyspnoea [None]
  - Lip swelling [None]
  - Heart rate increased [None]
  - Unresponsive to stimuli [None]

NARRATIVE: CASE EVENT DATE: 20211013
